FAERS Safety Report 9373886 (Version 1)
Quarter: 2013Q2

REPORT INFORMATION
  Report Type: Spontaneous
  Country: US (occurrence: US)
  Receive Date: 20130628
  Receipt Date: 20130628
  Transmission Date: 20140414
  Serious: No
  Sender: FDA-Public Use
  Company Number: US-B.I. PHARMACEUTICALS,INC./RIDGEFIELD-2013-BI-17786BP

PATIENT
  Age: 48 Year
  Sex: Female
  Weight: 59 kg

DRUGS (11)
  1. COMBIVENT [Suspect]
     Indication: CHRONIC OBSTRUCTIVE PULMONARY DISEASE
     Dosage: STRENGTH: 18 MCG / 103 MCG; DAILY DOSE: 72 MCG/412 MCG
     Route: 055
     Dates: start: 201301, end: 201303
  2. COMBIVENT [Suspect]
     Dosage: STRENGTH: 18 MCG / 103 MCG; DAILY DOSE: 144 MCG/824 MCG
     Route: 055
     Dates: start: 201303, end: 20130605
  3. COMBIVENT [Suspect]
     Indication: CHRONIC OBSTRUCTIVE PULMONARY DISEASE
     Dosage: STRENGTH: 20 MCG / 100 MCG; DAILY DOSE: 80 MCG/400 MCG
     Route: 055
     Dates: start: 20130606, end: 20130615
  4. SYNTHROID [Concomitant]
     Indication: HYPOTHYROIDISM
     Dosage: 1 ANZ
     Route: 048
  5. PROTONIX [Concomitant]
     Indication: GASTRIC ULCER
     Dosage: 1 ANZ
     Route: 048
  6. PROTONIX [Concomitant]
     Indication: HIATUS HERNIA
  7. ALBUTEROL AND IPRATROPIUM NEBULIZER [Concomitant]
     Indication: CHRONIC OBSTRUCTIVE PULMONARY DISEASE
     Dosage: (INHALATION AEROSOL)
     Route: 055
  8. CELEBREX [Concomitant]
     Indication: FIBROMYALGIA
     Dosage: 1 ANZ
     Route: 048
  9. BACLOFEN [Concomitant]
     Indication: FIBROMYALGIA
     Dosage: 4 ANZ
     Route: 048
  10. LYRICA [Concomitant]
     Indication: FIBROMYALGIA
     Dosage: 4 ANZ
     Route: 048
  11. PREMARIN [Concomitant]
     Indication: HORMONE REPLACEMENT THERAPY
     Dosage: 1 ANZ
     Route: 048

REACTIONS (3)
  - Dry throat [Not Recovered/Not Resolved]
  - Increased upper airway secretion [Not Recovered/Not Resolved]
  - Dry mouth [Not Recovered/Not Resolved]
